FAERS Safety Report 8307464-1 (Version None)
Quarter: 2012Q2

REPORT INFORMATION
  Report Type: 
  Country: None (occurrence: None)
  Receive Date: 20120424
  Receipt Date: 20120417
  Transmission Date: 20120825
  Serious: Yes (Life-Threatening, Hospitalization)
  Sender: FDA-Public Use
  Company Number: FR-PFIZER INC-2009269409

PATIENT
  Age: 52 Year
  Sex: Female
  Weight: 42 kg

DRUGS (6)
  1. FLUOROURACIL [Suspect]
     Dosage: 4000 MG, EVERY 2 WEEKS
     Route: 042
     Dates: end: 20090715
  2. FRAXODI [Suspect]
     Indication: VENA CAVA THROMBOSIS
     Dosage: 1 DF, 1X/DAY
     Route: 058
     Dates: start: 20090619, end: 20090801
  3. IRINOTECAN HCL [Suspect]
     Dosage: 260 MG, EVERY 2 WEEKS
     Route: 042
     Dates: end: 20090715
  4. FRAXODI [Suspect]
     Indication: PELVIC VENOUS THROMBOSIS
  5. AVASTIN [Suspect]
     Dosage: 220 MG, EVERY 2 WEEKS
     Route: 042
     Dates: start: 20090610, end: 20090715
  6. LEVOLEUCOVORIN CALCIUM [Suspect]
     Dosage: 280 MG, EVERY 2 WEEKS
     Route: 042
     Dates: end: 20090715

REACTIONS (2)
  - DUODENAL ULCER HAEMORRHAGE [None]
  - ANAEMIA [None]
